FAERS Safety Report 12216950 (Version 4)
Quarter: 2016Q2

REPORT INFORMATION
  Report Type: Report from Study
  Country: BR (occurrence: BR)
  Receive Date: 20160329
  Receipt Date: 20160412
  Transmission Date: 20160815
  Serious: Yes (Hospitalization)
  Sender: FDA-Public Use
  Company Number: PHHY2016BR010611

PATIENT
  Age: 53 Year
  Sex: Male
  Weight: 77 kg

DRUGS (5)
  1. VITAMIN D [Concomitant]
     Active Substance: CHOLECALCIFEROL
     Indication: MULTIPLE SCLEROSIS
     Dosage: 1 DF (3000U), QD 1 YEAR AGO
     Route: 048
  2. VENLIFT [Concomitant]
     Active Substance: VENLAFAXINE HYDROCHLORIDE
     Indication: ANTIDEPRESSANT THERAPY
     Dosage: 75 MG (ONE TABLET), QD
     Route: 048
  3. APRESOLINE HYDROCHLORIDE [Concomitant]
     Active Substance: HYDRALAZINE HYDROCHLORIDE
     Indication: HYPERTENSION
     Dosage: 1 DF, QD
     Route: 048
  4. GILENYA [Suspect]
     Active Substance: FINGOLIMOD HYDROCHLORIDE
     Indication: MULTIPLE SCLEROSIS
     Dosage: 0.5 MG, QD (IN THE MORNING)
     Route: 048
     Dates: start: 201411
  5. TARGIFOR [Concomitant]
     Indication: VITAMIN SUPPLEMENTATION
     Dosage: 1 DF (2 MG), QD 2 YEARS AGO
     Route: 048

REACTIONS (22)
  - Multiple sclerosis relapse [Recovering/Resolving]
  - Visual impairment [Recovering/Resolving]
  - Head discomfort [Recovered/Resolved]
  - Balance disorder [Recovering/Resolving]
  - Sensory loss [Recovering/Resolving]
  - Vision blurred [Not Recovered/Not Resolved]
  - Hemiparesis [Not Recovered/Not Resolved]
  - Asthenia [Recovering/Resolving]
  - Gait disturbance [Not Recovered/Not Resolved]
  - Fall [Unknown]
  - Ataxia [Not Recovered/Not Resolved]
  - Central nervous system lesion [Not Recovered/Not Resolved]
  - Arthropathy [Recovering/Resolving]
  - Hypoacusis [Recovered/Resolved]
  - Neurogenic bladder [Recovering/Resolving]
  - Spinal disorder [Not Recovered/Not Resolved]
  - Limb discomfort [Recovering/Resolving]
  - Influenza [Recovering/Resolving]
  - Tinnitus [Recovered/Resolved]
  - Dizziness [Recovered/Resolved]
  - Fatigue [Not Recovered/Not Resolved]
  - Movement disorder [Recovering/Resolving]

NARRATIVE: CASE EVENT DATE: 201502
